FAERS Safety Report 8106292-X (Version None)
Quarter: 2012Q1

REPORT INFORMATION
  Report Type: 
  Country: None (occurrence: None)
  Receive Date: 20120130
  Receipt Date: 20120118
  Transmission Date: 20120608
  Serious: Yes (Other)
  Sender: FDA-Public Use
  Company Number: 216085

PATIENT
  Sex: Female
  Weight: 53 kg

DRUGS (3)
  1. COVERAM (AMLODIPINE) (5 MG) [Concomitant]
  2. INNOHEP [Suspect]
     Indication: POSTOPERATIVE CARE
     Dosage: 3500 IU, SUBCUTANEOUS
     Route: 058
     Dates: start: 20111103
  3. INNOHEP [Suspect]
     Indication: HYSTERECTOMY
     Dosage: 3500 IU, SUBCUTANEOUS
     Route: 058
     Dates: start: 20111103

REACTIONS (1)
  - PLATELET COUNT INCREASED [None]
